FAERS Safety Report 10908512 (Version 1)
Quarter: 2015Q1

REPORT INFORMATION
  Report Type: Spontaneous
  Country: GB (occurrence: GB)
  Receive Date: 20150312
  Receipt Date: 20150312
  Transmission Date: 20150721
  Serious: Yes (Hospitalization)
  Sender: FDA-Public Use
  Company Number: GB-WATSON-2015-04631

PATIENT
  Sex: Female
  Weight: 70 kg

DRUGS (3)
  1. ABACAVIR W/LAMIVUDINE [Suspect]
     Active Substance: ABACAVIR\LAMIVUDINE
     Indication: RETROVIRAL INFECTION
     Dosage: UNK
     Route: 048
     Dates: start: 20141215, end: 20150121
  2. RALTEGRAVIR [Suspect]
     Active Substance: RALTEGRAVIR
     Indication: RETROVIRAL INFECTION
     Dosage: 400 MG, BID
     Route: 048
     Dates: start: 20141215, end: 20150129
  3. COTRIMOXAZOLE [Suspect]
     Active Substance: SULFAMETHOXAZOLE\TRIMETHOPRIM
     Indication: ANTIFUNGAL PROPHYLAXIS
     Dosage: 480 MG, DAILY
     Route: 048
     Dates: start: 20141128, end: 20150129

REACTIONS (2)
  - Drug reaction with eosinophilia and systemic symptoms [Recovering/Resolving]
  - Liver function test abnormal [Unknown]

NARRATIVE: CASE EVENT DATE: 20150119
